FAERS Safety Report 6558888-4 (Version None)
Quarter: 2010Q1

REPORT INFORMATION
  Report Type: 
  Country: None (occurrence: None)
  Receive Date: 20100129
  Receipt Date: 20100122
  Transmission Date: 20100710
  Serious: No
  Sender: FDA-Public Use
  Company Number: US-B.I. PHARMACEUTICALS,INC./RIDGEFIELD-2010-BP-00783BP

PATIENT
  Sex: Male

DRUGS (2)
  1. MELOXICAM [Suspect]
  2. CONAZEPAM [Concomitant]

REACTIONS (6)
  - AMNESIA [None]
  - BLADDER DILATATION [None]
  - DRUG INEFFECTIVE [None]
  - DYSURIA [None]
  - NOSOPHOBIA [None]
  - PROSTATIC DISORDER [None]
